FAERS Safety Report 5737352-6 (Version None)
Quarter: 2008Q2

REPORT INFORMATION
  Report Type: 
  Country: None (occurrence: None)
  Receive Date: 20080514
  Receipt Date: 20080507
  Transmission Date: 20081010
  Serious: Yes (Disabling)
  Sender: FDA-Public Use
  Company Number: PHHY2008IT07446

PATIENT
  Age: 69 Year
  Sex: Male

DRUGS (3)
  1. ZOMETA [Suspect]
     Indication: MULTIPLE MYELOMA
     Dosage: 4 MG, QMO
     Route: 042
     Dates: start: 20060101
  2. GALANTAMINE HYDROBROMIDE [Concomitant]
     Route: 048
  3. AMOXICILLIN + CLAVULANATE POTASSIUM [Concomitant]
     Route: 048

REACTIONS (1)
  - OSTEONECROSIS [None]
